FAERS Safety Report 7014194-5 (Version None)
Quarter: 2010Q3

REPORT INFORMATION
  Report Type: 
  Country: None (occurrence: None)
  Receive Date: 20100927
  Receipt Date: 20100823
  Transmission Date: 20110219
  Serious: Yes (Other)
  Sender: FDA-Public Use
  Company Number: US-BAYER-201019202NA

PATIENT
  Age: 36 Year
  Sex: Female

DRUGS (1)
  1. MIRENA [Suspect]
     Indication: CONTRACEPTION
     Route: 015
     Dates: start: 20090921, end: 20100401

REACTIONS (8)
  - ADNEXA UTERI PAIN [None]
  - DIZZINESS [None]
  - FUNGAL INFECTION [None]
  - HEADACHE [None]
  - HORMONE LEVEL ABNORMAL [None]
  - URINARY TRACT INFECTION [None]
  - VAGINAL INFECTION [None]
  - VISION BLURRED [None]
